FAERS Safety Report 14790917 (Version 1)
Quarter: 2018Q2

REPORT INFORMATION
  Report Type: Spontaneous
  Country: CA (occurrence: CA)
  Receive Date: 20180423
  Receipt Date: 20180423
  Transmission Date: 20180711
  Serious: Yes (Hospitalization, Disabling, Other)
  Sender: FDA-Public Use
  Company Number: CA-APOTEX-2018AP011395

PATIENT
  Age: 70 Year
  Sex: Male

DRUGS (3)
  1. LEVODOPA, CARBIDOPA [Suspect]
     Active Substance: CARBIDOPA\LEVODOPA
     Dosage: 1000/130 MG PER DAY
     Route: 065
  2. LEVODOPA, CARBIDOPA [Suspect]
     Active Substance: CARBIDOPA\LEVODOPA
     Dosage: 1200/130 MG PER DAY
     Route: 065
  3. LEVODOPA, CARBIDOPA [Suspect]
     Active Substance: CARBIDOPA\LEVODOPA
     Indication: PARKINSON^S DISEASE
     Dosage: 1200/300 MG TOTAL DOSE, DAILY
     Route: 065

REACTIONS (13)
  - Headache [Recovered/Resolved]
  - Mobility decreased [Recovered/Resolved]
  - Delirium [Recovering/Resolving]
  - Constipation [Recovered/Resolved]
  - Fall [Unknown]
  - Suicide attempt [Unknown]
  - Insomnia [Recovered/Resolved]
  - Anxiety [Recovered/Resolved]
  - Orthostatic hypotension [Recovering/Resolving]
  - Dizziness [Recovered/Resolved]
  - Confusional state [Recovering/Resolving]
  - Hallucination [Recovered/Resolved]
  - Suicidal ideation [Recovered/Resolved]
